FAERS Safety Report 25461223 (Version 1)
Quarter: 2025Q2

REPORT INFORMATION
  Report Type: Spontaneous
  Country: US (occurrence: US)
  Receive Date: 20250620
  Receipt Date: 20250620
  Transmission Date: 20250716
  Serious: Yes (Other)
  Sender: UCB
  Company Number: US-UCBSA-2025035957

PATIENT
  Sex: Male

DRUGS (1)
  1. BIMZELX [Suspect]
     Active Substance: BIMEKIZUMAB-BKZX
     Indication: Psoriatic arthropathy
     Dosage: 160 MILLIGRAM, EV 4 WEEKS
     Route: 058

REACTIONS (7)
  - Psoriatic arthropathy [Unknown]
  - Blindness unilateral [Unknown]
  - Feeling abnormal [Unknown]
  - Tendon rupture [Unknown]
  - Sleep disorder [Unknown]
  - Hyperhidrosis [Unknown]
  - Tendon disorder [Unknown]

NARRATIVE: CASE EVENT DATE: 20250101
